FAERS Safety Report 8396054-0 (Version None)
Quarter: 2012Q2

REPORT INFORMATION
  Report Type: 
  Country: None (occurrence: None)
  Receive Date: 20120530
  Receipt Date: 20120521
  Transmission Date: 20120825
  Serious: Yes (Other)
  Sender: FDA-Public Use
  Company Number: US-ASTRAZENECA-2009UW10695

PATIENT
  Age: 62 Year
  Sex: Female

DRUGS (15)
  1. SEROQUEL [Suspect]
     Route: 048
  2. SEROQUEL [Suspect]
     Route: 048
     Dates: start: 20070806
  3. SEROQUEL [Suspect]
     Route: 048
  4. SEROQUEL [Suspect]
     Route: 048
  5. SEROQUEL [Suspect]
     Route: 048
  6. SEROQUEL [Suspect]
     Dosage: 25 MG 6TABLET PM AND 4 TABLET AM
     Route: 048
  7. LYRICA [Concomitant]
  8. SEROQUEL [Suspect]
     Indication: SLEEP DISORDER
     Route: 048
     Dates: start: 19990101
  9. SEROQUEL [Suspect]
     Dosage: 25 MG 6TABLET PM AND 4 TABLET AM
     Route: 048
  10. SEROQUEL [Suspect]
     Route: 048
  11. SEROQUEL [Suspect]
     Indication: BIPOLAR DISORDER
     Route: 048
     Dates: start: 19990101
  12. SEROQUEL [Suspect]
     Route: 048
     Dates: start: 20070806
  13. SEROQUEL [Suspect]
     Route: 048
  14. TRILEPTAL [Concomitant]
  15. PAIN MEDICATION [Concomitant]

REACTIONS (22)
  - FEELING ABNORMAL [None]
  - MENTAL IMPAIRMENT [None]
  - EATING DISORDER [None]
  - SUICIDAL IDEATION [None]
  - BIPOLAR DISORDER [None]
  - DEREALISATION [None]
  - DISTURBANCE IN ATTENTION [None]
  - PAIN [None]
  - DRUG INEFFECTIVE [None]
  - HYPERCHOLESTEROLAEMIA [None]
  - WRONG DRUG ADMINISTERED [None]
  - SLEEP DISORDER [None]
  - ABNORMAL BEHAVIOUR [None]
  - BIPOLAR I DISORDER [None]
  - JUDGEMENT IMPAIRED [None]
  - RESTLESSNESS [None]
  - GLUCOSE TOLERANCE IMPAIRED [None]
  - HYPERTENSION [None]
  - VERTIGO [None]
  - NERVOUS SYSTEM DISORDER [None]
  - MALAISE [None]
  - INTENTIONAL DRUG MISUSE [None]
